FAERS Safety Report 9401945 (Version 1)
Quarter: 2013Q3

REPORT INFORMATION
  Report Type: Spontaneous
  Country: US (occurrence: US)
  Receive Date: 20130716
  Receipt Date: 20130716
  Transmission Date: 20140515
  Serious: No
  Sender: FDA-Public Use
  Company Number: US-PFIZER INC-2013206430

PATIENT
  Age: 86 Year
  Sex: Female
  Weight: 63.49 kg

DRUGS (2)
  1. LYRICA [Suspect]
     Dosage: 50 MG, 2X/DAY
     Route: 048
     Dates: start: 20130711, end: 20130712
  2. ZEBETA [Concomitant]
     Dosage: UNK

REACTIONS (2)
  - Abdominal pain upper [Unknown]
  - Vomiting [Unknown]
